FAERS Safety Report 7521946-1 (Version None)
Quarter: 2011Q2

REPORT INFORMATION
  Report Type: 
  Country: None (occurrence: None)
  Receive Date: 20110603
  Receipt Date: 20110531
  Transmission Date: 20111010
  Serious: Yes (Other)
  Sender: FDA-Public Use
  Company Number: US-BRISTOL-MYERS SQUIBB COMPANY-15760739

PATIENT
  Age: 33 Year
  Sex: Female

DRUGS (6)
  1. ABILIFY [Suspect]
     Route: 065
  2. RISPERDAL [Suspect]
     Route: 065
  3. FANAPT [Suspect]
     Route: 048
  4. SEROQUEL [Suspect]
     Route: 065
  5. AMBIEN [Suspect]
     Dosage: AMBIEN FILM COATED TABS
     Route: 048
  6. TEGRETOL [Suspect]
     Dosage: D/C TEGRETOL

REACTIONS (2)
  - HALLUCINATION [None]
  - INSOMNIA [None]
